FAERS Safety Report 8593063-3 (Version None)
Quarter: 2012Q3

REPORT INFORMATION
  Report Type: 
  Country: None (occurrence: None)
  Receive Date: 20120814
  Receipt Date: 20120806
  Transmission Date: 20120928
  Serious: Yes (Life-Threatening, Hospitalization, Disabling)
  Sender: FDA-Public Use
  Company Number: FR-GLAXOSMITHKLINE-B0819640A

PATIENT
  Sex: Female

DRUGS (1)
  1. ATOVAQUONE [Suspect]
     Indication: PNEUMOCYSTIS JIROVECI PNEUMONIA
     Dosage: 15G SINGLE DOSE
     Route: 050
     Dates: start: 20120412, end: 20120412

REACTIONS (5)
  - PARALYSIS FLACCID [None]
  - PERIPHERAL SENSORIMOTOR NEUROPATHY [None]
  - DISTURBANCE IN ATTENTION [None]
  - ACCIDENTAL OVERDOSE [None]
  - PAINFUL RESPIRATION [None]
